FAERS Safety Report 10506108 (Version 1)
Quarter: 2014Q4

REPORT INFORMATION
  Report Type: Spontaneous
  Country: NO (occurrence: NO)
  Receive Date: 20141008
  Receipt Date: 20141008
  Transmission Date: 20150528
  Serious: Yes (Life-Threatening, Hospitalization)
  Sender: FDA-Public Use
  Company Number: NO-BRISTOL-MYERS SQUIBB COMPANY-21479449

PATIENT
  Age: 56 Year
  Sex: Male

DRUGS (6)
  1. TEGRETOL [Suspect]
     Active Substance: CARBAMAZEPINE
  2. PREDNISONE. [Concomitant]
     Active Substance: PREDNISONE
     Route: 048
  3. ARIPIPRAZOLE. [Suspect]
     Active Substance: ARIPIPRAZOLE
     Indication: MENTAL DISORDER
     Route: 048
  4. DALACIN [Suspect]
     Active Substance: CLINDAMYCIN\CLINDAMYCIN PHOSPHATE
     Indication: VASCULITIS
  5. ORFIRIL [Suspect]
     Active Substance: VALPROIC ACID
     Route: 048
  6. CLOZAPINE. [Suspect]
     Active Substance: CLOZAPINE

REACTIONS (3)
  - Vasculitis [Recovered/Resolved]
  - Thrombocytopenia [Recovered/Resolved]
  - Rash generalised [Recovering/Resolving]
